FAERS Safety Report 22518874 (Version 1)
Quarter: 2023Q2

REPORT INFORMATION
  Report Type: Spontaneous
  Country: CA (occurrence: CA)
  Receive Date: 20230605
  Receipt Date: 20230605
  Transmission Date: 20230722
  Serious: Yes (Other)
  Sender: FDA-Public Use
  Company Number: CA-BRISTOL-MYERS SQUIBB COMPANY-2023-076331

PATIENT
  Age: 60 Year
  Sex: Male

DRUGS (2)
  1. NIVOLUMAB [Suspect]
     Active Substance: NIVOLUMAB
     Indication: Malignant melanoma
  2. IPILIMUMAB [Suspect]
     Active Substance: IPILIMUMAB
     Indication: Malignant melanoma

REACTIONS (8)
  - Fatigue [Unknown]
  - Immune-mediated hypophysitis [Unknown]
  - Immune-mediated dermatitis [Unknown]
  - Nausea [Unknown]
  - Abdominal pain [Unknown]
  - Multisystem inflammatory syndrome [Unknown]
  - Alopecia [Unknown]
  - Immune-mediated pancreatitis [Unknown]
